FAERS Safety Report 16256962 (Version 1)
Quarter: 2019Q2

REPORT INFORMATION
  Report Type: Spontaneous
  Country: US (occurrence: US)
  Receive Date: 20190430
  Receipt Date: 20190430
  Transmission Date: 20190711
  Serious: Yes (Hospitalization)
  Sender: FDA-Public Use
  Company Number: US-ROCHE-2308229

PATIENT
  Age: 88 Year
  Sex: Female

DRUGS (19)
  1. ALBUTEROL [SALBUTAMOL] [Concomitant]
     Active Substance: ALBUTEROL
  2. NITROGLYCERIN. [Concomitant]
     Active Substance: NITROGLYCERIN
  3. PROMETHAZINE [Concomitant]
     Active Substance: PROMETHAZINE\PROMETHAZINE HYDROCHLORIDE
  4. SENNA [SENNA ALEXANDRINA] [Concomitant]
     Active Substance: SENNA LEAF
  5. IPRATROPIUM [Concomitant]
     Active Substance: IPRATROPIUM
  6. ASCORBIC ACID. [Concomitant]
     Active Substance: ASCORBIC ACID
  7. METHYLPREDNISOLONE. [Concomitant]
     Active Substance: METHYLPREDNISOLONE
     Route: 042
  8. PIRFENIDONE. [Suspect]
     Active Substance: PIRFENIDONE
     Indication: IDIOPATHIC PULMONARY FIBROSIS
     Route: 048
  9. ATORVASTATIN [Concomitant]
     Active Substance: ATORVASTATIN
  10. BENZONATATE. [Concomitant]
     Active Substance: BENZONATATE
  11. PREDNISONE. [Concomitant]
     Active Substance: PREDNISONE
     Route: 048
  12. OMEPRAZOLE. [Concomitant]
     Active Substance: OMEPRAZOLE
  13. AMLODIPINE [Concomitant]
     Active Substance: AMLODIPINE BESYLATE
  14. GUAIFENESIN. [Concomitant]
     Active Substance: GUAIFENESIN
  15. CEFTRIAXONE. [Concomitant]
     Active Substance: CEFTRIAXONE
     Route: 065
  16. AZITHROMYCIN ANHYDROUS. [Concomitant]
     Active Substance: AZITHROMYCIN ANHYDROUS
     Route: 048
  17. CHOLECALCIFEROL [Concomitant]
     Active Substance: CHOLECALCIFEROL
  18. ASPIRIN [ACETYLSALICYLIC ACID] [Concomitant]
     Active Substance: ASPIRIN
  19. PREDNISONE. [Concomitant]
     Active Substance: PREDNISONE

REACTIONS (1)
  - Pulmonary alveolar haemorrhage [Recovering/Resolving]
